FAERS Safety Report 17017443 (Version 1)
Quarter: 2019Q4

REPORT INFORMATION
  Report Type: Spontaneous
  Country: US (occurrence: US)
  Receive Date: 20191111
  Receipt Date: 20191111
  Transmission Date: 20200122
  Serious: No
  Sender: FDA-Public Use
  Company Number: US-VERTEX PHARMACEUTICALS-2019-010773

PATIENT
  Age: 6 Year
  Sex: Female

DRUGS (10)
  1. AZITHROMYCIN ANHYDROUS. [Concomitant]
     Active Substance: AZITHROMYCIN ANHYDROUS
  2. POSACONAZOLE [Concomitant]
     Active Substance: POSACONAZOLE
  3. SYMDEKO [Suspect]
     Active Substance: IVACAFTOR\TEZACAFTOR
     Indication: CYSTIC FIBROSIS
     Dosage: 50 MG TEZACAFTOR/75MG IVACAFTOR AM; 75MG IVACAFTOR PM
     Route: 048
     Dates: start: 20190911, end: 201910
  4. CIPROFLOXACIN. [Concomitant]
     Active Substance: CIPROFLOXACIN
  5. AMOXICILLIN/CLAV POT [Concomitant]
  6. ATORVASTATIN [Concomitant]
     Active Substance: ATORVASTATIN
  7. LINEZOLID. [Concomitant]
     Active Substance: LINEZOLID
  8. MOXIFLOXACIN. [Concomitant]
     Active Substance: MOXIFLOXACIN
  9. SYMDEKO [Suspect]
     Active Substance: IVACAFTOR\TEZACAFTOR
     Dosage: REDUCED DOSE
     Route: 048
     Dates: start: 201910
  10. MESALAMINE. [Concomitant]
     Active Substance: MESALAMINE

REACTIONS (2)
  - Sinusitis [Unknown]
  - Culture throat positive [Unknown]

NARRATIVE: CASE EVENT DATE: 2019
